FAERS Safety Report 5865018-0 (Version None)
Quarter: 2008Q3

REPORT INFORMATION
  Report Type: 
  Country: None (occurrence: None)
  Receive Date: 20080829
  Receipt Date: 20080822
  Transmission Date: 20090109
  Serious: Yes (Hospitalization)
  Sender: FDA-Public Use
  Company Number: A0690189A

PATIENT
  Age: 58 Year
  Sex: Female
  Weight: 186.4 kg

DRUGS (2)
  1. AVANDIA [Suspect]
     Dosage: 4MG PER DAY
     Route: 048
     Dates: start: 19990101, end: 20060403
  2. GLUCOPHAGE [Concomitant]
     Dosage: 500MG PER DAY
     Dates: start: 19950101, end: 20060403

REACTIONS (6)
  - ADVERSE EVENT [None]
  - ARTERIOSCLEROSIS [None]
  - CORONARY ARTERY DISEASE [None]
  - INJURY [None]
  - MYOCARDIAL INFARCTION [None]
  - PAIN [None]
